FAERS Safety Report 12231686 (Version 3)
Quarter: 2016Q2

REPORT INFORMATION
  Report Type: Spontaneous
  Country: IL (occurrence: IL)
  Receive Date: 20160401
  Receipt Date: 20160420
  Transmission Date: 20160815
  Serious: Yes (Hospitalization, Other)
  Sender: FDA-Public Use
  Company Number: IL-ASTRAZENECA-2016SE34019

PATIENT
  Age: 71 Year
  Sex: Male

DRUGS (6)
  1. VASODIP [Concomitant]
     Active Substance: LERCANIDIPINE HYDROCHLORIDE
  2. BYDUREON [Suspect]
     Active Substance: EXENATIDE
     Indication: DIABETES MELLITUS
     Route: 058
     Dates: start: 2016
  3. CRESTOR [Concomitant]
     Active Substance: ROSUVASTATIN CALCIUM
     Route: 048
  4. CARDILOC [Concomitant]
     Active Substance: BISOPROLOL FUMARATE
  5. CO-DIOVAN [Concomitant]
     Active Substance: HYDROCHLOROTHIAZIDE\VALSARTAN
  6. BYDUREON [Suspect]
     Active Substance: EXENATIDE
     Indication: DIABETES MELLITUS
     Route: 058
     Dates: start: 20140219, end: 201602

REACTIONS (3)
  - Myocardial infarction [Unknown]
  - Weight decreased [Unknown]
  - Injection site nodule [Unknown]

NARRATIVE: CASE EVENT DATE: 2016
